FAERS Safety Report 19477973 (Version 1)
Quarter: 2021Q2

REPORT INFORMATION
  Report Type: Spontaneous
  Country: CN (occurrence: CN)
  Receive Date: 20210630
  Receipt Date: 20210630
  Transmission Date: 20210717
  Serious: Yes (Other)
  Sender: FDA-Public Use
  Company Number: CN-ROCHE-2858263

PATIENT
  Age: 51 Year
  Sex: Female

DRUGS (2)
  1. BENDAMUSTINE [Concomitant]
     Active Substance: BENDAMUSTINE
     Indication: FOLLICULAR LYMPHOMA
     Dosage: ON 26/FEB/2021, 29/MAR/2021, 29/APR/2021 AND 27/MAY/2021
     Dates: start: 20210226
  2. RITUXIMAB. [Suspect]
     Active Substance: RITUXIMAB
     Indication: FOLLICULAR LYMPHOMA
     Dosage: ON 26/FEB/2021, 29/MAR/2021, 29/APR/2021 AND 27/MAY/2021
     Route: 065
     Dates: start: 20210226

REACTIONS (2)
  - Gastrointestinal disorder [Unknown]
  - Myelosuppression [Unknown]
